FAERS Safety Report 5681396-X (Version None)
Quarter: 2008Q1

REPORT INFORMATION
  Report Type: 
  Country: None (occurrence: None)
  Receive Date: 20080326
  Receipt Date: 20070806
  Transmission Date: 20080703
  Serious: Yes (Other)
  Sender: FDA-Public Use
  Company Number: US-BAYER-US-2007-003330

PATIENT
  Age: 36 Year
  Sex: Female
  Weight: 75 kg

DRUGS (1)
  1. MIRENA [Suspect]
     Indication: CONTRACEPTION
     Route: 015
     Dates: start: 20061103, end: 20070130

REACTIONS (6)
  - ACNE [None]
  - GENITAL HAEMORRHAGE [None]
  - MOOD SWINGS [None]
  - NAUSEA [None]
  - URINARY TRACT INFECTION [None]
  - WEIGHT INCREASED [None]
